FAERS Safety Report 18161689 (Version 2)
Quarter: 2020Q3

REPORT INFORMATION
  Report Type: Spontaneous
  Country: US (occurrence: US)
  Receive Date: 20200817
  Receipt Date: 20200824
  Transmission Date: 20201103
  Serious: Yes (Other)
  Sender: FDA-Public Use
  Company Number: US-ROCHE-2655460

PATIENT
  Sex: Female

DRUGS (12)
  1. GLUCOSAMINE [Concomitant]
     Active Substance: GLUCOSAMINE
  2. CHONDROITIN [Concomitant]
     Active Substance: CHONDROITIN
  3. TURMERIC [Concomitant]
     Active Substance: HERBALS\TURMERIC
  4. AMPYRA [Suspect]
     Active Substance: DALFAMPRIDINE
     Indication: MULTIPLE SCLEROSIS
     Route: 048
     Dates: start: 201912
  5. BIOTIN [Concomitant]
     Active Substance: BIOTIN
  6. OCREVUS [Suspect]
     Active Substance: OCRELIZUMAB
     Indication: MULTIPLE SCLEROSIS
     Dosage: UNKNOWN
     Route: 042
     Dates: start: 201912
  7. COPAXONE [Suspect]
     Active Substance: GLATIRAMER ACETATE
     Indication: PRODUCT USED FOR UNKNOWN INDICATION
     Route: 065
     Dates: start: 2007, end: 2012
  8. BACLOFEN. [Concomitant]
     Active Substance: BACLOFEN
  9. DIFLUCAN [Concomitant]
     Active Substance: FLUCONAZOLE
  10. VITAMIN D3 [Concomitant]
     Active Substance: CHOLECALCIFEROL
  11. CARBAMAZEPINE. [Concomitant]
     Active Substance: CARBAMAZEPINE
  12. COPAXONE [Suspect]
     Active Substance: GLATIRAMER ACETATE
     Route: 065
     Dates: start: 2014

REACTIONS (15)
  - Muscle spasms [Unknown]
  - Muscular weakness [Unknown]
  - Multiple sclerosis [Unknown]
  - Multiple sclerosis relapse [Unknown]
  - Neuralgia [Unknown]
  - Spinal stenosis [Unknown]
  - Gait spastic [Unknown]
  - Micturition urgency [Unknown]
  - Limb discomfort [Unknown]
  - Pollakiuria [Unknown]
  - Optic neuropathy [Unknown]
  - Gait disturbance [Unknown]
  - Mobility decreased [Unknown]
  - Fatigue [Unknown]
  - Therapy non-responder [Unknown]

NARRATIVE: CASE EVENT DATE: 2012
